FAERS Safety Report 16986018 (Version 1)
Quarter: 2019Q4

REPORT INFORMATION
  Report Type: Spontaneous
  Country: US (occurrence: US)
  Receive Date: 20190906
  Receipt Date: 20190906
  Transmission Date: 20200122
  Serious: No
  Sender: FDA-Public Use
  Company Number: None

PATIENT
  Age: 74 Year
  Sex: Male

DRUGS (1)
  1. ABIRATERONE 250MG TAB [Suspect]
     Active Substance: ABIRATERONE
     Route: 048
     Dates: start: 201811, end: 201901

REACTIONS (4)
  - Hot flush [None]
  - Feeling abnormal [None]
  - Blood testosterone decreased [None]
  - Libido decreased [None]

NARRATIVE: CASE EVENT DATE: 20190115
